FAERS Safety Report 8821802 (Version 8)
Quarter: 2014Q2

REPORT INFORMATION
  Report Type: Report from Study
  Country: US (occurrence: US)
  Receive Date: 20121002
  Receipt Date: 20140407
  Transmission Date: 20141212
  Serious: Yes (Hospitalization)
  Sender: FDA-Public Use
  Company Number: US-VERTEX PHARMACEUTICAL INC.-2012-020693

PATIENT
  Age: 49 Year
  Sex: Female

DRUGS (18)
  1. VX-770 [Suspect]
     Indication: CYSTIC FIBROSIS
     Dosage: 150 MG, QD
     Route: 048
     Dates: start: 20120726
  2. ADVAIR [Concomitant]
     Dosage: 250-50 MCG 1 PUFF
  3. CALTRATE [Concomitant]
     Dosage: UNK, QD
  4. DEXILANT [Concomitant]
     Dosage: 60 MG, QD
  5. XOPENEX [Concomitant]
     Dosage: 0.63 MG, BID
  6. VITAMIN K [Concomitant]
     Dosage: 5 MG, QW
  7. VITAMIN D [Concomitant]
     Dosage: 50000 UNIT EVERY M.W, F
  8. TYLENOL [Concomitant]
     Dosage: 500 MG, PRN
  9. MULTIVITAMIN [Concomitant]
     Dosage: UNK, BID
  10. MIRALAX [Concomitant]
     Dosage: 3350 UNK, UNK
  11. LORATADINE [Concomitant]
  12. LAXATIVE [Concomitant]
     Dosage: 3 DF, BID
     Route: 048
  13. LANTUS [Concomitant]
     Dosage: 100 MG, UNK
  14. SODIUM CHLORIDE [Concomitant]
     Dosage: 7 %, BID
  15. FLAXSEED OIL [Concomitant]
     Dosage: UNK, BID
  16. DIFLUCAN [Concomitant]
     Dosage: 100 MG, QD
     Route: 048
  17. NOVOLOG [Concomitant]
     Dosage: 100 UNIT/M
  18. DEOXYRIBONUCLEASE HUMAN [Concomitant]
     Dosage: 3.5 MG, UNK

REACTIONS (6)
  - Infective pulmonary exacerbation of cystic fibrosis [Unknown]
  - Cough [Not Recovered/Not Resolved]
  - Inappropriate schedule of drug administration [Not Recovered/Not Resolved]
  - Nausea [Not Recovered/Not Resolved]
  - Headache [Not Recovered/Not Resolved]
  - Diarrhoea [Recovering/Resolving]
